FAERS Safety Report 5355306-9 (Version None)
Quarter: 2007Q2

REPORT INFORMATION
  Report Type: 
  Country: None (occurrence: None)
  Receive Date: 20070601
  Receipt Date: 20070410
  Transmission Date: 20071010
  Serious: Yes (Hospitalization)
  Sender: FDA-Public Use
  Company Number: S07-USA-01537-01

PATIENT
  Sex: Male

DRUGS (1)
  1. CAMPRAL [Suspect]

REACTIONS (1)
  - DEEP VEIN THROMBOSIS [None]
